FAERS Safety Report 8351446-0 (Version None)
Quarter: 2012Q2

REPORT INFORMATION
  Report Type: 
  Country: None (occurrence: None)
  Receive Date: 20120510
  Receipt Date: 20120505
  Transmission Date: 20120825
  Serious: Yes (Death, Hospitalization)
  Sender: FDA-Public Use
  Company Number: RO-ROCHE-1064872

PATIENT
  Sex: Male
  Weight: 55 kg

DRUGS (10)
  1. RITUXAN [Suspect]
     Indication: MANTLE CELL LYMPHOMA
     Route: 042
     Dates: start: 20111228, end: 20120424
  2. ACIDUM URSODEOXYCHOLICUM [Concomitant]
     Indication: MANTLE CELL LYMPHOMA
     Dates: start: 20120225
  3. FLUDARABINE PHOSPHATE [Suspect]
     Indication: MANTLE CELL LYMPHOMA
  4. VITAMIN B6 [Concomitant]
     Indication: MANTLE CELL LYMPHOMA
     Dates: start: 20111001, end: 20120429
  5. ARGININ [Concomitant]
     Indication: MANTLE CELL LYMPHOMA
     Dates: start: 20120403, end: 20120504
  6. ACYCLOVIR [Concomitant]
     Indication: MANTLE CELL LYMPHOMA
     Dates: start: 20120101, end: 20120504
  7. SILIBININ [Concomitant]
     Indication: MANTLE CELL LYMPHOMA
     Dates: start: 20120403, end: 20120504
  8. ACID FOLIC [Concomitant]
     Indication: MANTLE CELL LYMPHOMA
     Dates: start: 20111001, end: 20120504
  9. COTRIM [Concomitant]
     Indication: MANTLE CELL LYMPHOMA
     Dates: start: 20120101, end: 20120429
  10. ALLOPURINOL [Concomitant]
     Indication: MANTLE CELL LYMPHOMA
     Dates: start: 20111228

REACTIONS (2)
  - SEPSIS [None]
  - FEBRILE NEUTROPENIA [None]
